FAERS Safety Report 6543027-6 (Version None)
Quarter: 2010Q1

REPORT INFORMATION
  Report Type: 
  Country: None (occurrence: None)
  Receive Date: 20100120
  Receipt Date: 20100108
  Transmission Date: 20100710
  Serious: No
  Sender: FDA-Public Use
  Company Number: US-BAYER-201011485NA

PATIENT
  Age: 22 Year
  Sex: Female
  Weight: 56 kg

DRUGS (1)
  1. MAGNEVIST [Suspect]
     Indication: ABDOMINAL PAIN
     Dosage: TOTAL DAILY DOSE: 11 ML  UNIT DOSE: 50 ML
     Route: 042
     Dates: start: 20100108, end: 20100108

REACTIONS (2)
  - PRURITUS [None]
  - RASH [None]
